FAERS Safety Report 10065575 (Version 4)
Quarter: 2015Q3

REPORT INFORMATION
  Report Type: Spontaneous
  Country: US (occurrence: US)
  Receive Date: 20140408
  Receipt Date: 20150731
  Transmission Date: 20151125
  Serious: Yes (Death, Life-Threatening, Hospitalization, Other)
  Sender: FDA-Public Use
  Company Number: US-009507513-1404USA004102

PATIENT
  Sex: Female
  Weight: 86.17 kg

DRUGS (3)
  1. JANUVIA [Suspect]
     Active Substance: SITAGLIPTIN PHOSPHATE
     Indication: TYPE 2 DIABETES MELLITUS
     Dosage: 100 MG, QD
     Route: 048
     Dates: start: 20110330, end: 20120713
  2. LYRICA [Concomitant]
     Active Substance: PREGABALIN
     Indication: DIABETIC NEUROPATHY
     Dosage: UNK
     Dates: start: 2009, end: 20120414
  3. JANUVIA [Suspect]
     Active Substance: SITAGLIPTIN PHOSPHATE
     Dosage: 100 MG, QD
     Route: 048
     Dates: start: 20110628, end: 20120131

REACTIONS (19)
  - Gastric cancer [Unknown]
  - Femur fracture [Unknown]
  - Intramedullary rod insertion [Unknown]
  - Cholelithiasis [Unknown]
  - Hepatic cirrhosis [Unknown]
  - Pancreatic carcinoma [Fatal]
  - Cholecystitis acute [Unknown]
  - Sinus disorder [Unknown]
  - Spinal osteoarthritis [Unknown]
  - Metastases to peritoneum [Unknown]
  - Osteopenia [Unknown]
  - Lymphadenopathy [Unknown]
  - Metastases to lung [Unknown]
  - Diverticulum [Unknown]
  - Gallbladder operation [Unknown]
  - Goitre [Unknown]
  - Metastases to liver [Unknown]
  - Anaemia of chronic disease [Unknown]
  - Osteoarthritis [Unknown]

NARRATIVE: CASE EVENT DATE: 2011
